FAERS Safety Report 19030111 (Version 1)
Quarter: 2021Q1

REPORT INFORMATION
  Report Type: Spontaneous
  Country: AU (occurrence: AU)
  Receive Date: 20210319
  Receipt Date: 20210319
  Transmission Date: 20210420
  Serious: Yes (Life-Threatening, Hospitalization, Other)
  Sender: FDA-Public Use
  Company Number: AU-SA-2021SA023112

PATIENT
  Age: 55 Year
  Sex: Male

DRUGS (10)
  1. AMOXICILLIN CLAVULANIC ACID [Concomitant]
     Active Substance: AMOXICILLIN\CLAVULANIC ACID
     Indication: PYELONEPHRITIS
     Dosage: UNK
  2. LABETALOL [Concomitant]
     Active Substance: LABETALOL\LABETALOL HYDROCHLORIDE
     Indication: BLOOD PRESSURE SYSTOLIC INCREASED
  3. AMLODIPINE [Concomitant]
     Active Substance: AMLODIPINE BESYLATE
     Indication: BLOOD PRESSURE SYSTOLIC INCREASED
     Dosage: 10 MG
  4. ENOXAPARIN SODIUM. [Suspect]
     Active Substance: ENOXAPARIN SODIUM
     Indication: ACUTE MYOCARDIAL INFARCTION
     Dosage: UNK
  5. CLONIDINE. [Concomitant]
     Active Substance: CLONIDINE
     Indication: BLOOD PRESSURE SYSTOLIC INCREASED
     Dosage: 50 UG
  6. FENTANYL. [Concomitant]
     Active Substance: FENTANYL
     Indication: PAIN MANAGEMENT
     Dosage: UNK UNK, PRN
  7. ACETYLSALICYLIC ACID [Suspect]
     Active Substance: ASPIRIN
     Indication: ACUTE MYOCARDIAL INFARCTION
  8. PRAZOSIN. [Concomitant]
     Active Substance: PRAZOSIN
     Indication: BLOOD PRESSURE SYSTOLIC INCREASED
     Dosage: 0.5 MG
  9. KETAMINE [Concomitant]
     Active Substance: KETAMINE
     Indication: PAIN MANAGEMENT
     Dosage: 8 MG
  10. PARACETAMOL [Concomitant]
     Active Substance: ACETAMINOPHEN
     Indication: PAIN MANAGEMENT
     Dosage: 4 G

REACTIONS (20)
  - Retroperitoneal haemorrhage [Recovering/Resolving]
  - Condition aggravated [Recovering/Resolving]
  - Abdominal rebound tenderness [Recovering/Resolving]
  - Adrenal haemorrhage [Unknown]
  - Product use in unapproved indication [Unknown]
  - Haemoglobin decreased [Recovering/Resolving]
  - Pain [Unknown]
  - Pyelonephritis [Unknown]
  - Normetanephrine urine increased [Unknown]
  - Acute kidney injury [Unknown]
  - Haemoperitoneum [Unknown]
  - Neoplasm [Unknown]
  - Nephrolithiasis [Unknown]
  - Metanephrine urine increased [Unknown]
  - Adrenal cortex necrosis [Unknown]
  - Abdominal pain [Recovering/Resolving]
  - Flank pain [Unknown]
  - Left ventricular hypertrophy [Unknown]
  - White blood cell count increased [Unknown]
  - Phaeochromocytoma [Unknown]
